FAERS Safety Report 4574075-3 (Version None)
Quarter: 2005Q1

REPORT INFORMATION
  Report Type: 
  Country: None (occurrence: None)
  Receive Date: 20050204
  Receipt Date: 20050121
  Transmission Date: 20050727
  Serious: Yes (Other)
  Sender: FDA-Public Use
  Company Number: 2005018012

PATIENT
  Age: 57 Year
  Sex: Female

DRUGS (12)
  1. ZYVOX [Suspect]
     Indication: INFECTION
     Dosage: 1200 MG (600 MG, BID), ORAL
     Route: 048
     Dates: start: 20050119, end: 20050120
  2. CARBAMAZEPINE [Suspect]
     Indication: CONVULSION
  3. LORAZEPAM [Concomitant]
  4. CLONAZEPAM [Concomitant]
  5. LEVETIRACETAM [Concomitant]
  6. ETHOSUXIMIDE [Concomitant]
  7. PHENYTOIN SODIUM [Concomitant]
  8. METOCLOPRAMIDE [Concomitant]
  9. FUROSEMIDE (FUROSEMIDE) [Concomitant]
  10. CHLORDIAZEPOXIDE [Concomitant]
  11. POTASSIUM (POTASSIUM) [Concomitant]
  12. KLIOGEST (ESTRADIOL, NORETHISTERONE ACETATE) [Concomitant]

REACTIONS (2)
  - CONVULSION [None]
  - DRUG INTERACTION [None]
